FAERS Safety Report 9677215 (Version 2)
Quarter: 2013Q4

REPORT INFORMATION
  Report Type: Report from Study
  Country: US (occurrence: US)
  Receive Date: 20131108
  Receipt Date: 20131108
  Transmission Date: 20140711
  Serious: Yes (Hospitalization)
  Sender: FDA-Public Use
  Company Number: US-009507513-1205USA01471

PATIENT
  Age: 74 Year
  Sex: Female
  Weight: 79.4 kg

DRUGS (21)
  1. DECADRON ELIXIR [Suspect]
     Indication: PLASMA CELL MYELOMA
     Dosage: DAY OF AND DAY AFTER VELCADE DOSE
     Route: 048
     Dates: start: 20120109
  2. VELCADE [Suspect]
     Indication: PLASMA CELL MYELOMA
     Dosage: UNK
     Route: 042
     Dates: start: 201201, end: 201202
  3. VELCADE [Suspect]
     Dosage: DAY 1,4,8,11 OF 21 DAY CYCLE
     Route: 058
     Dates: start: 20120220, end: 20120223
  4. VELCADE [Suspect]
     Dosage: DAY 1,4,8,11 OF 21 DAY CYCLE
     Route: 058
     Dates: start: 20120223
  5. ZOMETA [Concomitant]
  6. XANAX [Concomitant]
  7. ASPIRIN [Concomitant]
  8. PROTONIX [Concomitant]
  9. VALIUM [Concomitant]
  10. CALCIUM (UNSPECIFIED) [Concomitant]
  11. VITAMIN D (UNSPECIFIED) [Concomitant]
  12. VITAMIN B COMPLEX [Concomitant]
  13. CENTRUM, JR. PLUS IRON [Concomitant]
  14. GLUCOSAMINE [Concomitant]
  15. CHONDROITIN [Concomitant]
  16. IMODIUM [Concomitant]
  17. METAMUCIL [Concomitant]
  18. ALEVE [Concomitant]
     Dosage: UNK UNK, PRN
  19. COREG [Concomitant]
  20. LASIX (FUROSEMIDE) [Concomitant]
  21. PRINIVIL [Concomitant]

REACTIONS (8)
  - Hypotension [Recovered/Resolved]
  - Pain in jaw [Recovered/Resolved]
  - Chest pain [Recovered/Resolved]
  - Fatigue [Recovered/Resolved]
  - Productive cough [Recovered/Resolved]
  - Dizziness [Recovered/Resolved]
  - Chest pain [Unknown]
  - Cardiac failure congestive [Unknown]
